FAERS Safety Report 9416284 (Version 1)
Quarter: 2013Q3

REPORT INFORMATION
  Report Type: Spontaneous
  Country: IN (occurrence: IN)
  Receive Date: 20130718
  Receipt Date: 20130718
  Transmission Date: 20140515
  Serious: Yes (Other)
  Sender: FDA-Public Use
  Company Number: 2013P1011910

PATIENT
  Age: 65 Year
  Sex: Female

DRUGS (5)
  1. AMLODIPINE [Suspect]
  2. FUROSEMIDE [Suspect]
  3. ATORVASTATIN [Suspect]
  4. CLOPIDOGREL [Suspect]
  5. UNSPECIFIED INSULIN [Concomitant]

REACTIONS (2)
  - Rhabdomyolysis [None]
  - Renal failure acute [None]
